FAERS Safety Report 12524169 (Version 1)
Quarter: 2016Q3

REPORT INFORMATION
  Report Type: Report from Study
  Country: US (occurrence: US)
  Receive Date: 20160704
  Receipt Date: 20160704
  Transmission Date: 20161109
  Serious: Yes (Other)
  Sender: FDA-Public Use
  Company Number: US-GILEAD-2016-0207144

PATIENT
  Age: 34 Year
  Sex: Female

DRUGS (2)
  1. AMBRISENTAN [Suspect]
     Active Substance: AMBRISENTAN
     Indication: PRODUCT USED FOR UNKNOWN INDICATION
     Dosage: 5 MG, QD
     Route: 065
     Dates: start: 20150501
  2. REMODULIN [Suspect]
     Active Substance: TREPROSTINIL
     Indication: PRODUCT USED FOR UNKNOWN INDICATION
     Route: 065

REACTIONS (8)
  - Injection site haemorrhage [Unknown]
  - Injection site erythema [Not Recovered/Not Resolved]
  - Injection site pain [Recovering/Resolving]
  - Neuralgia [Recovering/Resolving]
  - Nausea [Recovered/Resolved]
  - Injection site pruritus [Not Recovered/Not Resolved]
  - Cellulitis [Recovering/Resolving]
  - Injection site rash [Not Recovered/Not Resolved]
